FAERS Safety Report 5523249-3 (Version None)
Quarter: 2007Q4

REPORT INFORMATION
  Report Type: 
  Country: None (occurrence: None)
  Receive Date: 20071119
  Receipt Date: 20071119
  Transmission Date: 20080405
  Serious: No
  Sender: FDA-Public Use
  Company Number: None

PATIENT
  Sex: Male
  Weight: 83.9154 kg

DRUGS (1)
  1. ZICAM NASAL SWABS [Suspect]
     Indication: NASOPHARYNGITIS
     Dosage: 1 SWAB 2X DAILY NASAL
     Route: 045
     Dates: start: 20060801, end: 20061201

REACTIONS (2)
  - AGEUSIA [None]
  - ANOSMIA [None]
